FAERS Safety Report 9907959 (Version 2)
Quarter: 2014Q1

REPORT INFORMATION
  Report Type: Other
  Country: IT (occurrence: IT)
  Receive Date: 20140219
  Receipt Date: 20140227
  Transmission Date: 20141002
  Serious: Yes (Hospitalization)
  Sender: FDA-Public Use
  Company Number: IT-SUN PHARMACEUTICAL INDUSTRIES LTD-2014SUN00195

PATIENT
  Sex: 0

DRUGS (9)
  1. OXALIPLATINO SUN 5 MG/ML, CONCENTRATO PER SOLUZIONE PER INFUSIONE [Suspect]
     Indication: PANCREATIC CARCINOMA
     Dosage: 221 MG, TOTAL
     Route: 042
     Dates: start: 20131118, end: 20131118
  2. SODIUM THIOSULFATE [Suspect]
     Indication: INJECTION SITE EXTRAVASATION
     Dosage: 1 ML, PRN
     Route: 058
     Dates: start: 20131118, end: 20131118
  3. METFORMIN [Concomitant]
     Dosage: 1500 MG, UNK
     Dates: start: 20130621, end: 20131206
  4. ZOFRAN [Concomitant]
     Indication: PROPHYLAXIS OF NAUSEA AND VOMITING
     Dosage: 8 MG, UNK
     Route: 042
     Dates: start: 20131118, end: 20131118
  5. TATIONIL [Concomitant]
     Indication: PREMEDICATION
     Dosage: 3399 MG, UNK
     Dates: start: 20131118, end: 20131118
  6. ESOPRAL [Concomitant]
     Indication: GASTROOESOPHAGEAL REFLUX PROPHYLAXIS
     Dosage: 1 DF, UNK
     Route: 048
     Dates: start: 20130621, end: 20131206
  7. EUTIROX [Concomitant]
     Indication: HYPOTHYROIDISM
     Dosage: 1 DF, UNK
     Route: 048
     Dates: start: 20130621, end: 20131206
  8. PREVEX [Concomitant]
     Indication: HYPERTENSION
     Dosage: 1 DF, UNK
     Route: 048
     Dates: start: 20130621, end: 20131206
  9. XELODA [Concomitant]
     Indication: PANCREATIC CARCINOMA
     Dosage: 1500 MG, UNK
     Dates: start: 20131118, end: 20131206

REACTIONS (3)
  - Dysphonia [Recovered/Resolved]
  - Throat tightness [Recovered/Resolved]
  - Dyspnoea [Recovered/Resolved]
